FAERS Safety Report 5400001-0 (Version None)
Quarter: 2007Q3

REPORT INFORMATION
  Report Type: 
  Country: None (occurrence: None)
  Receive Date: 20070730
  Receipt Date: 20070723
  Transmission Date: 20080115
  Serious: Yes (Other)
  Sender: FDA-Public Use
  Company Number: US-BRISTOL-MYERS SQUIBB COMPANY-13858352

PATIENT
  Age: 53 Year
  Sex: Male

DRUGS (9)
  1. ERBITUX [Suspect]
     Indication: COLORECTAL CANCER METASTATIC
     Route: 041
  2. ACETAMINOPHEN [Concomitant]
     Indication: PREMEDICATION
  3. OXALIPLATIN [Concomitant]
     Indication: COLORECTAL CANCER METASTATIC
  4. FLUOROURACIL [Concomitant]
     Indication: COLORECTAL CANCER METASTATIC
  5. FOLINIC ACID [Concomitant]
     Indication: COLORECTAL CANCER METASTATIC
  6. CAPECITABINE [Concomitant]
     Indication: COLORECTAL CANCER METASTATIC
  7. FLOXURIDINE [Concomitant]
     Indication: COLORECTAL CANCER METASTATIC
  8. IRINOTECAN HCL [Concomitant]
     Indication: COLORECTAL CANCER METASTATIC
  9. DIPHENHYDRAMINE HCL [Concomitant]
     Indication: PREMEDICATION

REACTIONS (2)
  - HYPERTENSION [None]
  - INFUSION RELATED REACTION [None]
